FAERS Safety Report 13781664 (Version 1)
Quarter: 2017Q3

REPORT INFORMATION
  Report Type: Spontaneous
  Country: FR (occurrence: FR)
  Receive Date: 20170724
  Receipt Date: 20170724
  Transmission Date: 20171127
  Serious: Yes (Other)
  Sender: FDA-Public Use
  Company Number: FR-PFIZER INC-3118244

PATIENT
  Age: 14 Year
  Sex: Female

DRUGS (3)
  1. VFEND [Suspect]
     Active Substance: VORICONAZOLE
     Indication: ASPERGILLUS INFECTION
     Dosage: 300 MG, DOSE ADJUSTED TO OBTAIN A CORRECT RESIDUAL UNDER 600 MG/DAY OR 14 MG/KG/DAY, FREQ: 2 DAY; IN
     Route: 042
     Dates: start: 20150704, end: 20151110
  2. VINCRISTINE SULFATE. [Suspect]
     Active Substance: VINCRISTINE SULFATE
     Dosage: 1.4 MG, FREQ: 1 DAY ; INTERVAL : 1
     Route: 042
     Dates: start: 20151105, end: 20151105
  3. VINCRISTINE SULFATE. [Suspect]
     Active Substance: VINCRISTINE SULFATE
     Indication: ACUTE LYMPHOCYTIC LEUKAEMIA
     Dosage: UNK
     Dates: start: 20150612

REACTIONS (7)
  - Bronchopulmonary aspergillosis [Unknown]
  - Infection reactivation [Unknown]
  - Acute respiratory failure [Unknown]
  - Hallucination, auditory [Recovered/Resolved]
  - Nervous system disorder [Recovered/Resolved]
  - Hallucination, visual [Recovered/Resolved]
  - Encephalopathy [Recovered/Resolved]

NARRATIVE: CASE EVENT DATE: 20151110
